FAERS Safety Report 6516657-5 (Version None)
Quarter: 2009Q4

REPORT INFORMATION
  Report Type: 
  Country: None (occurrence: None)
  Receive Date: 20091223
  Receipt Date: 20091215
  Transmission Date: 20100525
  Serious: No
  Sender: FDA-Public Use
  Company Number: GB-MERCK-0910GBR00060

PATIENT
  Age: 42 Year
  Sex: Female

DRUGS (7)
  1. ISENTRESS [Suspect]
     Indication: HIV INFECTION
     Route: 065
     Dates: start: 20081023
  2. PREZISTA [Concomitant]
     Route: 048
     Dates: start: 20081023
  3. ETRAVIRINE [Concomitant]
     Route: 048
     Dates: start: 20081023
  4. NORVIR [Concomitant]
     Route: 048
     Dates: start: 20060905, end: 20081022
  5. NORVIR [Concomitant]
     Route: 048
     Dates: start: 20081023
  6. TRUVADA [Concomitant]
     Route: 065
     Dates: start: 20060905, end: 20081023
  7. APTIVUS [Concomitant]
     Route: 048
     Dates: start: 20060905, end: 20081023

REACTIONS (1)
  - DRUG EXPOSURE DURING PREGNANCY [None]
